FAERS Safety Report 6021660-8 (Version None)
Quarter: 2008Q4

REPORT INFORMATION
  Report Type: 
  Country: None (occurrence: None)
  Receive Date: 20081222
  Receipt Date: 20081003
  Transmission Date: 20090506
  Serious: No
  Sender: FDA-Public Use
  Company Number: ALL 1-2008-02882

PATIENT
  Age: 9 Year
  Sex: Male
  Weight: 34 kg

DRUGS (3)
  1. VYVANSE [Suspect]
     Indication: AUTISM
     Dosage: 30 MG, 1X/DAY:QD, ORAL ; 50 MG, 1X/DAY:QD, ORAL ; 30 MG, 1X/DAY:QD, ORAL
     Route: 048
     Dates: end: 20080601
  2. VYVANSE [Suspect]
     Indication: AUTISM
     Dosage: 30 MG, 1X/DAY:QD, ORAL ; 50 MG, 1X/DAY:QD, ORAL ; 30 MG, 1X/DAY:QD, ORAL
     Route: 048
     Dates: start: 20080901
  3. RISPERDAL [Concomitant]

REACTIONS (4)
  - DECREASED APPETITE [None]
  - DRUG EFFECT DECREASED [None]
  - MOOD ALTERED [None]
  - OFF LABEL USE [None]
